FAERS Safety Report 23870035 (Version 6)
Quarter: 2025Q1

REPORT INFORMATION
  Report Type: Spontaneous
  Country: US (occurrence: US)
  Receive Date: 20240517
  Receipt Date: 20250307
  Transmission Date: 20250408
  Serious: Yes (Other)
  Sender: SANOFI AVENTIS
  Company Number: US-SA-SAC20240513000357

PATIENT
  Age: 43 Year
  Sex: Male

DRUGS (2)
  1. ALTUVIIIO [Suspect]
     Active Substance: EFANESOCTOCOG ALFA
     Dosage: 2954 IU(2954 UNITS (+/- 10%)), QW
     Route: 065
  2. ALTUVIIIO [Suspect]
     Active Substance: EFANESOCTOCOG ALFA
     Route: 065

REACTIONS (8)
  - Haematemesis [Unknown]
  - Peripheral swelling [Unknown]
  - Joint swelling [Unknown]
  - Skin laceration [Unknown]
  - Skin haemorrhage [Unknown]
  - Buttock injury [Unknown]
  - Arthralgia [Unknown]
  - Surgery [Unknown]

NARRATIVE: CASE EVENT DATE: 20240101
